FAERS Safety Report 11287481 (Version 2)
Quarter: 2015Q4

REPORT INFORMATION
  Report Type: Spontaneous
  Country: JP (occurrence: JP)
  Receive Date: 20150721
  Receipt Date: 20151207
  Transmission Date: 20160304
  Serious: Yes (Death, Hospitalization, Other)
  Sender: FDA-Public Use
  Company Number: JP-SA-2015SA105283

PATIENT
  Age: 55 Year
  Sex: Male

DRUGS (5)
  1. DOCETAXEL. [Suspect]
     Active Substance: DOCETAXEL
     Indication: NASOPHARYNGEAL CANCER
     Dosage: FOR 6 CYCLES
     Route: 065
  2. FLUOROURACIL. [Suspect]
     Active Substance: FLUOROURACIL
     Indication: NASOPHARYNGEAL CANCER
     Dosage: 5 DAYS
     Route: 048
  3. CISPLATIN. [Suspect]
     Active Substance: CISPLATIN
     Indication: NASOPHARYNGEAL CANCER
     Dosage: 6 CYCLES
     Route: 065
  4. CISPLATIN. [Suspect]
     Active Substance: CISPLATIN
     Indication: NASOPHARYNGEAL CANCER
     Dosage: ON DAY 1
     Route: 048
  5. DOCETAXEL. [Suspect]
     Active Substance: DOCETAXEL
     Indication: NASOPHARYNGEAL CANCER
     Dosage: ON DAY1
     Route: 048

REACTIONS (18)
  - Urine output decreased [Fatal]
  - Candida infection [Unknown]
  - Pyrexia [Fatal]
  - Stomatitis [Unknown]
  - Diarrhoea [Fatal]
  - Sepsis [Unknown]
  - Acute respiratory distress syndrome [Fatal]
  - Cytomegalovirus infection [Fatal]
  - Septic shock [Fatal]
  - Renal impairment [Unknown]
  - Febrile neutropenia [Fatal]
  - Blood pressure decreased [Fatal]
  - Diffuse alveolar damage [Fatal]
  - Enterocolitis [Fatal]
  - Gastrointestinal oedema [Fatal]
  - Neutropenia [Fatal]
  - Pneumonia staphylococcal [Fatal]
  - Generalised oedema [Unknown]
